FAERS Safety Report 7246118-X (Version None)
Quarter: 2011Q1

REPORT INFORMATION
  Report Type: 
  Country: None (occurrence: None)
  Receive Date: 20110126
  Receipt Date: 20110119
  Transmission Date: 20110831
  Serious: Yes (Hospitalization)
  Sender: FDA-Public Use
  Company Number: A0908716A

PATIENT
  Sex: Male

DRUGS (1)
  1. PAXIL [Suspect]
     Indication: ATTENTION DEFICIT/HYPERACTIVITY DISORDER
     Route: 048

REACTIONS (17)
  - ABNORMAL BEHAVIOUR [None]
  - WITHDRAWAL SYNDROME [None]
  - PARAESTHESIA [None]
  - MUSCLE SPASMS [None]
  - EMOTIONAL DISTRESS [None]
  - NAUSEA [None]
  - DEPRESSION [None]
  - AGGRESSION [None]
  - PAIN [None]
  - LACERATION [None]
  - ECONOMIC PROBLEM [None]
  - IMPULSIVE BEHAVIOUR [None]
  - DISSOCIATIVE DISORDER [None]
  - SUICIDE ATTEMPT [None]
  - EMOTIONAL DISORDER [None]
  - DRUG INEFFECTIVE [None]
  - COGNITIVE DISORDER [None]
